FAERS Safety Report 16035770 (Version 2)
Quarter: 2019Q1

REPORT INFORMATION
  Report Type: Spontaneous
  Country: GB (occurrence: GB)
  Receive Date: 20190305
  Receipt Date: 20190312
  Transmission Date: 20190418
  Serious: Yes (Death, Hospitalization)
  Sender: FDA-Public Use
  Company Number: GB-PFIZER INC-2019093947

PATIENT
  Age: 25 Year
  Sex: Male

DRUGS (1)
  1. XANAX [Suspect]
     Active Substance: ALPRAZOLAM
     Dosage: UNK (HALF A PILL)

REACTIONS (2)
  - Road traffic accident [Fatal]
  - Fall [Fatal]

NARRATIVE: CASE EVENT DATE: 20170212
